FAERS Safety Report 7282637-8 (Version None)
Quarter: 2011Q1

REPORT INFORMATION
  Report Type: 
  Country: None (occurrence: None)
  Receive Date: 20110209
  Receipt Date: 20110201
  Transmission Date: 20110831
  Serious: Yes (Life-Threatening, Hospitalization, Other)
  Sender: FDA-Public Use
  Company Number: DE-ABBOTT-10P-062-0663613-00

PATIENT
  Sex: Female
  Weight: 80 kg

DRUGS (27)
  1. HUMIRA [Suspect]
     Indication: ANKYLOSING SPONDYLITIS
  2. STRONTIUMRANELAT [Concomitant]
     Indication: PRODUCT USED FOR UNKNOWN INDICATION
  3. LEVODOPA W/BENSERAZIDE [Concomitant]
     Indication: PRODUCT USED FOR UNKNOWN INDICATION
  4. FENTANYL [Concomitant]
     Indication: PRODUCT USED FOR UNKNOWN INDICATION
  5. CALCIUM WITH VITAMIN D3 [Concomitant]
     Indication: PRODUCT USED FOR UNKNOWN INDICATION
  6. CIPRAMIL [Concomitant]
     Indication: PRODUCT USED FOR UNKNOWN INDICATION
     Dosage: DAILY DOSE: 20MG
  7. KALIUM [Concomitant]
     Indication: PRODUCT USED FOR UNKNOWN INDICATION
     Dosage: EFFERVESCENT TABLET,BID
  8. PREDNISOLONE [Concomitant]
     Indication: PRODUCT USED FOR UNKNOWN INDICATION
  9. PANTOZOL [Concomitant]
     Indication: PRODUCT USED FOR UNKNOWN INDICATION
  10. RAMIPRIL [Concomitant]
     Indication: PRODUCT USED FOR UNKNOWN INDICATION
     Dosage: DAILY DOSE: 5MG,MORNING
  11. SULTAMICILLIN [Concomitant]
     Indication: PRODUCT USED FOR UNKNOWN INDICATION
  12. DEKRISTOL [Concomitant]
     Indication: PRODUCT USED FOR UNKNOWN INDICATION
     Dosage: DAILY DOSE: 400MG
  13. NOVALGIN [Concomitant]
     Indication: PRODUCT USED FOR UNKNOWN INDICATION
  14. AMITRIPTYLINE HCL [Concomitant]
     Indication: PRODUCT USED FOR UNKNOWN INDICATION
  15. PHENPROCOUMON [Concomitant]
     Indication: PRODUCT USED FOR UNKNOWN INDICATION
     Dosage: ACCORDING TO QUICK/INR
  16. MORPHINE [Concomitant]
     Indication: PRODUCT USED FOR UNKNOWN INDICATION
     Route: 062
     Dates: start: 20100821
  17. GLUCOCORTICOIDS [Concomitant]
     Indication: PRODUCT USED FOR UNKNOWN INDICATION
     Dosage: 20 MG DAILY
     Dates: start: 20100823
  18. ACT [Concomitant]
     Indication: PRODUCT USED FOR UNKNOWN INDICATION
     Dosage: DAILY DOSE: 25MG
  19. CARVEDILOL [Concomitant]
     Indication: PRODUCT USED FOR UNKNOWN INDICATION
     Dosage: DAILY DOSE: 12.5MG
  20. PROTELOS [Concomitant]
     Indication: PRODUCT USED FOR UNKNOWN INDICATION
     Dosage: DAILY DOSE: 2GM
  21. MOVICOL [Concomitant]
     Indication: PRODUCT USED FOR UNKNOWN INDICATION
  22. LEVOTHYROXINE SODIUM [Concomitant]
     Indication: PRODUCT USED FOR UNKNOWN INDICATION
     Dosage: DAILY DOSE: 100MG IN MORNING
  23. CELECOXIB [Concomitant]
     Indication: PRODUCT USED FOR UNKNOWN INDICATION
  24. CLEXANE [Concomitant]
     Indication: PRODUCT USED FOR UNKNOWN INDICATION
  25. FALITHROM [Concomitant]
     Indication: PRODUCT USED FOR UNKNOWN INDICATION
  26. HUMIRA [Suspect]
     Indication: RHEUMATOID ARTHRITIS
     Dates: start: 20100601, end: 20100701
  27. TOLPERISON [Concomitant]
     Indication: PRODUCT USED FOR UNKNOWN INDICATION

REACTIONS (9)
  - DEPRESSION [None]
  - THROMBOSIS [None]
  - OSTEOARTHRITIS [None]
  - INFECTION [None]
  - PNEUMONIA [None]
  - TREATMENT FAILURE [None]
  - ABSCESS [None]
  - PULMONARY ARTERY THROMBOSIS [None]
  - MUSCLE ABSCESS [None]
